FAERS Safety Report 21410459 (Version 1)
Quarter: 2022Q4

REPORT INFORMATION
  Report Type: Spontaneous
  Country: US (occurrence: None)
  Receive Date: 20221003
  Receipt Date: 20221003
  Transmission Date: 20230113
  Serious: No
  Sender: FDA-Public Use
  Company Number: None

PATIENT
  Age: 86 Year
  Sex: Male
  Weight: 111.58 kg

DRUGS (23)
  1. ABIRATERONE [Suspect]
     Active Substance: ABIRATERONE
     Indication: Prostate cancer
     Dosage: FREQUENCY : DAILY;?
     Route: 048
     Dates: start: 202011
  2. PREDNISONE [Suspect]
     Active Substance: PREDNISONE
  3. ACETAMINOPHEN\CODEINE PHOSPHATE [Concomitant]
     Active Substance: ACETAMINOPHEN\CODEINE PHOSPHATE
  4. ALLOPURINOL [Concomitant]
     Active Substance: ALLOPURINOL
  5. Coenzyme Q-10 [Concomitant]
  6. COLACE [Concomitant]
     Active Substance: DOCUSATE SODIUM
  7. AMIODARONE HYDROCHLORIDE [Concomitant]
     Active Substance: AMIODARONE HYDROCHLORIDE
  8. AZULFIDINE [Concomitant]
     Active Substance: SULFASALAZINE
  9. BICALUTAMIDE [Concomitant]
     Active Substance: BICALUTAMIDE
  10. CARVEDILOL [Concomitant]
     Active Substance: CARVEDILOL
  11. DALIRESP [Concomitant]
     Active Substance: ROFLUMILAST
  12. FERROUS SULFATE [Concomitant]
     Active Substance: FERROUS SULFATE
  13. FLONASE [Concomitant]
     Active Substance: FLUTICASONE PROPIONATE
  14. FUROSEMIDE [Concomitant]
     Active Substance: FUROSEMIDE
  15. LIPITOR [Concomitant]
     Active Substance: ATORVASTATIN CALCIUM
  16. LISINOPRIL [Concomitant]
     Active Substance: LISINOPRIL
  17. METFORMIN HYDROCHLORIDE [Concomitant]
     Active Substance: METFORMIN HYDROCHLORIDE
  18. VITAMINS [Concomitant]
     Active Substance: VITAMINS
  19. POTASSIUM CHLORIDE [Concomitant]
     Active Substance: POTASSIUM CHLORIDE
  20. SPIRIVA RESPIMAT [Concomitant]
     Active Substance: TIOTROPIUM BROMIDE
  21. VITAMIN C [Concomitant]
     Active Substance: ASCORBIC ACID
  22. VITAMIN D3 [Concomitant]
     Active Substance: CHOLECALCIFEROL
  23. WARFARIN SODIUM [Concomitant]
     Active Substance: WARFARIN SODIUM

REACTIONS (1)
  - COVID-19 [None]
